FAERS Safety Report 5227889-0 (Version None)
Quarter: 2007Q1

REPORT INFORMATION
  Report Type: 
  Country: None (occurrence: None)
  Receive Date: 20070202
  Receipt Date: 20070124
  Transmission Date: 20070707
  Serious: Yes (Other)
  Sender: FDA-Public Use
  Company Number: US-PFIZER INC-2006150092

PATIENT
  Sex: Female
  Weight: 52.2 kg

DRUGS (10)
  1. LIPITOR [Suspect]
     Indication: BLOOD CHOLESTEROL INCREASED
     Route: 048
  2. LIPITOR [Suspect]
     Indication: HYPERLIPIDAEMIA
  3. LIPITOR [Suspect]
     Indication: CORONARY ARTERY DISEASE
  4. PLAVIX [Concomitant]
  5. ASPIRIN [Concomitant]
  6. ZETIA [Concomitant]
  7. METOPROLOL TARTRATE [Concomitant]
  8. KLONOPIN [Concomitant]
  9. OXYCODONE HCL [Concomitant]
  10. ULTRACET [Concomitant]

REACTIONS (4)
  - HIGH DENSITY LIPOPROTEIN [None]
  - MUSCLE DISORDER [None]
  - MUSCULOSKELETAL CHEST PAIN [None]
  - RASH [None]
